FAERS Safety Report 12372716 (Version 1)
Quarter: 2016Q2

REPORT INFORMATION
  Report Type: Spontaneous
  Country: GB (occurrence: GB)
  Receive Date: 20160516
  Receipt Date: 20160516
  Transmission Date: 20160815
  Serious: Yes (Other)
  Sender: FDA-Public Use
  Company Number: GB-009507513-1605GBR006258

PATIENT
  Age: 54 Year
  Sex: Female
  Weight: 136 kg

DRUGS (10)
  1. PREDNISOLONE. [Concomitant]
     Active Substance: PREDNISOLONE
  2. ALBUTEROL. [Concomitant]
     Active Substance: ALBUTEROL
  3. HUMIRA [Concomitant]
     Active Substance: ADALIMUMAB
  4. MERCAPTOPURINE. [Concomitant]
     Active Substance: MERCAPTOPURINE
  5. AMITRIPTYLINE HYDROCHLORIDE. [Concomitant]
     Active Substance: AMITRIPTYLINE HYDROCHLORIDE
  6. BECOTIDE [Concomitant]
     Active Substance: BECLOMETHASONE DIPROPIONATE
  7. RIVAROXABAN [Concomitant]
     Active Substance: RIVAROXABAN
  8. LANSOPRAZOLE. [Concomitant]
     Active Substance: LANSOPRAZOLE
  9. VALACYCLOVIR HYDROCHLORIDE. [Concomitant]
     Active Substance: VALACYCLOVIR HYDROCHLORIDE
  10. SITAGLIPTIN PHOSPHATE [Suspect]
     Active Substance: SITAGLIPTIN PHOSPHATE
     Indication: DIABETES MELLITUS
     Dosage: 100 MG, UNK
     Route: 048
     Dates: start: 20160408

REACTIONS (6)
  - Mucosal discolouration [Unknown]
  - Headache [Unknown]
  - Pyrexia [Unknown]
  - Upper respiratory tract infection [Not Recovered/Not Resolved]
  - Oropharyngeal pain [Unknown]
  - Productive cough [Unknown]

NARRATIVE: CASE EVENT DATE: 20160412
